FAERS Safety Report 8773041 (Version 1)
Quarter: 2012Q4

REPORT INFORMATION
  Report Type: Report from Study
  Country: CA (occurrence: CA)
  Receive Date: 20120907
  Receipt Date: 20120907
  Transmission Date: 20130627
  Serious: Yes (Hospitalization)
  Sender: FDA-Public Use
  Company Number: CA-JNJFOC-20120815139

PATIENT
  Age: 27 Year
  Sex: Male
  Weight: 46 kg

DRUGS (4)
  1. REMICADE [Suspect]
     Indication: CROHN^S DISEASE
     Route: 042
     Dates: start: 20071114
  2. DILAUDID [Concomitant]
     Route: 065
  3. CLONAZEPAM [Concomitant]
     Route: 065
  4. HYDROMORPHONE CONTIN [Concomitant]
     Route: 048

REACTIONS (1)
  - Impaired self-care [Unknown]
